FAERS Safety Report 8711735 (Version 6)
Quarter: 2013Q1

REPORT INFORMATION
  Report Type: Spontaneous
  Country: US (occurrence: US)
  Receive Date: 20120807
  Receipt Date: 20130308
  Transmission Date: 20140127
  Serious: Yes (Hospitalization, Disabling, Other)
  Sender: FDA-Public Use
  Company Number: US-009507513-1207USA011981

PATIENT
  Sex: Female
  Weight: 71.2 kg

DRUGS (4)
  1. FOSAMAX [Suspect]
     Indication: OSTEOPOROSIS PROPHYLAXIS
     Dosage: 70 MG, QW
     Route: 048
     Dates: start: 199801, end: 200712
  2. FOSAMAX [Suspect]
     Indication: OSTEOPENIA
  3. BONIVA [Suspect]
     Indication: OSTEOPOROSIS PROPHYLAXIS
     Dosage: 150 MG, UNK
     Dates: start: 20080121, end: 201008
  4. VITAMINS (UNSPECIFIED) [Concomitant]
     Dosage: UNK

REACTIONS (32)
  - Femur fracture [Recovering/Resolving]
  - Intramedullary rod insertion [Unknown]
  - Low turnover osteopathy [Not Recovered/Not Resolved]
  - Rotator cuff syndrome [Unknown]
  - Rotator cuff repair [Unknown]
  - Haemorrhagic anaemia [Unknown]
  - Arthritis [Unknown]
  - Urinary incontinence [Unknown]
  - Hyperlipidaemia [Unknown]
  - Fibrocystic breast disease [Unknown]
  - Hypertension [Unknown]
  - Road traffic accident [Unknown]
  - Spinal pain [Unknown]
  - Fibromyalgia [Unknown]
  - Chest discomfort [Unknown]
  - Pharyngitis [Unknown]
  - Bronchitis [Unknown]
  - Osteoarthritis [Unknown]
  - Adjustment disorder [Unknown]
  - Hiatus hernia [Unknown]
  - Acquired oesophageal web [Unknown]
  - Bunion operation [Unknown]
  - Neurectomy [Unknown]
  - Pubis fracture [Recovering/Resolving]
  - Arthralgia [Unknown]
  - Gastrooesophageal reflux disease [Unknown]
  - Urticaria [Unknown]
  - Angioedema [Unknown]
  - Drug hypersensitivity [Unknown]
  - Muscle spasms [Unknown]
  - Arthralgia [Unknown]
  - Gastritis [Unknown]
